FAERS Safety Report 22215672 (Version 1)
Quarter: 2023Q2

REPORT INFORMATION
  Report Type: Spontaneous
  Country: US (occurrence: US)
  Receive Date: 20230416
  Receipt Date: 20230416
  Transmission Date: 20230721
  Serious: No
  Sender: FDA-Public Use
  Company Number: ALV-0036351-01

PATIENT

DRUGS (1)
  1. ROCURONIUM BROMIDE [Suspect]
     Active Substance: ROCURONIUM BROMIDE
     Indication: Endotracheal intubation
     Dosage: UNK
     Route: 065

REACTIONS (4)
  - Respiratory rate increased [Unknown]
  - Cough [Unknown]
  - Drug ineffective [Unknown]
  - Product complaint [Unknown]
